FAERS Safety Report 13740612 (Version 5)
Quarter: 2018Q4

REPORT INFORMATION
  Report Type: Report from Study
  Country: US (occurrence: US)
  Receive Date: 20170711
  Receipt Date: 20181023
  Transmission Date: 20190204
  Serious: Yes (Death, Life-Threatening, Hospitalization)
  Sender: FDA-Public Use
  Company Number: US-PFIZER INC-2017294587

PATIENT
  Age: 39 Year
  Sex: Female
  Weight: 43 kg

DRUGS (21)
  1. METHYLPREDNISOLONE SODIUM SUCCINATE. [Suspect]
     Active Substance: METHYLPREDNISOLONE SODIUM SUCCINATE
     Dosage: 45 MG, 1X/DAY
     Route: 042
     Dates: start: 20170718, end: 20170726
  2. INCB018424 [Suspect]
     Active Substance: RUXOLITINIB
     Dosage: 5 MG, 2X/DAY
     Route: 048
     Dates: start: 20170321, end: 20170324
  3. INCB018424 [Suspect]
     Active Substance: RUXOLITINIB
     Indication: GRAFT VERSUS HOST DISEASE
     Dosage: 5 MG, 2X/DAY
     Route: 048
     Dates: start: 20170224, end: 20170228
  4. INCB018424 [Suspect]
     Active Substance: RUXOLITINIB
     Dosage: 10 MG, 2X/DAY
     Route: 048
     Dates: start: 20170228, end: 20170321
  5. PREDNISONE. [Suspect]
     Active Substance: PREDNISONE
     Indication: GRAFT VERSUS HOST DISEASE
     Dosage: 50 MG, 1X/DAY (Q24H)
     Route: 048
     Dates: start: 20170509, end: 20170515
  6. PREDNISONE. [Suspect]
     Active Substance: PREDNISONE
     Dosage: 40 MG, 1X/DAY
     Route: 048
     Dates: start: 20170516, end: 20170522
  7. PREDNISONE. [Suspect]
     Active Substance: PREDNISONE
     Dosage: 30 MG, 1X/DAY
     Route: 048
     Dates: start: 20170523, end: 20170524
  8. METHYLPREDNISOLONE SODIUM SUCCINATE. [Suspect]
     Active Substance: METHYLPREDNISOLONE SODIUM SUCCINATE
     Dosage: 24 MG, 1X/DAY
     Route: 042
     Dates: start: 20170608, end: 20170609
  9. INCB018424 [Suspect]
     Active Substance: RUXOLITINIB
     Dosage: 10 MG, 2X/DAY
     Route: 048
     Dates: start: 20170324, end: 20170717
  10. METHYLPREDNISOLONE SODIUM SUCCINATE. [Suspect]
     Active Substance: METHYLPREDNISOLONE SODIUM SUCCINATE
     Dosage: 80 MG, 1X/DAY
     Route: 042
     Dates: start: 20170713, end: 20170713
  11. MARIBAVIR [Suspect]
     Active Substance: MARIBAVIR
     Indication: CYTOMEGALOVIRUS VIRAEMIA
     Dosage: 400 MG, 2X/DAY
     Dates: start: 20170630, end: 20170714
  12. METHADONE [Concomitant]
     Active Substance: METHADONE HYDROCHLORIDE
  13. VICODIN [Concomitant]
     Active Substance: ACETAMINOPHEN\HYDROCODONE BITARTRATE
  14. TYLENOL [Concomitant]
     Active Substance: ACETAMINOPHEN
  15. METHYLPREDNISOLONE SODIUM SUCCINATE. [Suspect]
     Active Substance: METHYLPREDNISOLONE SODIUM SUCCINATE
     Indication: GRAFT VERSUS HOST DISEASE
     Dosage: 50 MG, 1X/DAY (Q24H)
     Route: 042
     Dates: start: 20170502, end: 20170508
  16. ATIVAN [Concomitant]
     Active Substance: LORAZEPAM
  17. METHYLPREDNISOLONE SODIUM SUCCINATE. [Suspect]
     Active Substance: METHYLPREDNISOLONE SODIUM SUCCINATE
     Dosage: 28 MG, 1X/DAY
     Route: 042
     Dates: start: 20170607, end: 20170607
  18. METHYLPREDNISOLONE. [Suspect]
     Active Substance: METHYLPREDNISOLONE
     Indication: GRAFT VERSUS HOST DISEASE
     Dosage: 30 MG, 1X/DAY
     Route: 048
     Dates: start: 20170629, end: 20170629
  19. PREDNISONE. [Suspect]
     Active Substance: PREDNISONE
     Dosage: 35 MG, 1X/DAY
     Route: 048
     Dates: start: 20170530, end: 20170606
  20. INCB018424 [Suspect]
     Active Substance: RUXOLITINIB
     Dosage: 5 MG, 2X/DAY
     Route: 048
     Dates: start: 20170717
  21. PREDNISONE. [Suspect]
     Active Substance: PREDNISONE
     Dosage: 40 MG, 1X/DAY
     Route: 048
     Dates: start: 20170525, end: 20170529

REACTIONS (5)
  - Lower gastrointestinal haemorrhage [Not Recovered/Not Resolved]
  - Pneumatosis intestinalis [Recovered/Resolved]
  - Delirium [Not Recovered/Not Resolved]
  - Failure to thrive [Not Recovered/Not Resolved]
  - Bacteraemia [Recovered/Resolved]

NARRATIVE: CASE EVENT DATE: 20170602
